FAERS Safety Report 19384449 (Version 1)
Quarter: 2021Q2

REPORT INFORMATION
  Report Type: Report from Study
  Country: FR (occurrence: FR)
  Receive Date: 20210607
  Receipt Date: 20210607
  Transmission Date: 20210717
  Serious: Yes (Hospitalization)
  Sender: FDA-Public Use
  Company Number: FR-BRISTOL-MYERS SQUIBB COMPANY-BMS-2021-053210

PATIENT
  Age: 77 Year
  Sex: Male

DRUGS (9)
  1. NIVOLUMAB [Suspect]
     Active Substance: NIVOLUMAB
     Indication: B-CELL LYMPHOMA
     Dosage: 195 MILLIGRAM, 1 X CYCLE
     Route: 042
     Dates: start: 20210428, end: 20210528
  2. RITUXIMAB. [Suspect]
     Active Substance: RITUXIMAB
     Indication: B-CELL LYMPHOMA
     Dosage: 656 MILLIGRAM, 1 X CYCLE
     Route: 042
     Dates: start: 20210429, end: 20210528
  3. INNOHEP [Concomitant]
     Active Substance: TINZAPARIN SODIUM
     Indication: ANTICOAGULANT THERAPY
     Dosage: 12000 INTERNATIONAL UNIT, QD
     Route: 048
  4. BISOPROLOL [Concomitant]
     Active Substance: BISOPROLOL
     Indication: CARDIAC DISORDER
     Dosage: 2.5 MILLIGRAM, BID
     Route: 048
  5. OXALIPLATIN. [Suspect]
     Active Substance: OXALIPLATIN
     Indication: B-CELL LYMPHOMA
     Dosage: 175 MILLIGRAM, 1 X CYCLE
     Route: 042
     Dates: start: 20210430, end: 20210528
  6. GEMCITABINE HYDROCHLORIDE. [Suspect]
     Active Substance: GEMCITABINE HYDROCHLORIDE
     Indication: B-CELL LYMPHOMA
     Dosage: 1750 MILLIGRAM, 1 X CYCLE
     Route: 042
     Dates: start: 20210430, end: 20210528
  7. LENOGRASTIM [Suspect]
     Active Substance: LENOGRASTIM
     Indication: B-CELL LYMPHOMA
     Dosage: 48 MU, D5 TO D 10
     Route: 058
     Dates: start: 20210503, end: 20210523
  8. BACTRIM [Concomitant]
     Active Substance: SULFAMETHOXAZOLE\TRIMETHOPRIM
     Indication: PROPHYLAXIS
     Dosage: 960 MILLIGRAM, 3 X WEEK
     Route: 048
     Dates: start: 20210428
  9. ZELITREX [Concomitant]
     Active Substance: VALACYCLOVIR HYDROCHLORIDE
     Indication: PROPHYLAXIS
     Dosage: 500 MILLIGRAM, BID
     Route: 048
     Dates: start: 20210428

REACTIONS (2)
  - Oxygen saturation decreased [Recovering/Resolving]
  - Pyrexia [Recovering/Resolving]

NARRATIVE: CASE EVENT DATE: 20210529
